FAERS Safety Report 5731988-4 (Version None)
Quarter: 2008Q2

REPORT INFORMATION
  Report Type: 
  Country: None (occurrence: None)
  Receive Date: 20080508
  Receipt Date: 20080428
  Transmission Date: 20081010
  Serious: Yes (Disabling)
  Sender: FDA-Public Use
  Company Number: FR-JNJFOC-20061205225

PATIENT
  Age: 47 Year
  Sex: Male

DRUGS (10)
  1. TAVANIC [Suspect]
     Indication: PNEUMONIA
     Route: 048
     Dates: start: 20060403, end: 20060411
  2. ORELOX [Concomitant]
     Indication: PNEUMONIA
     Route: 065
  3. CORTIVAZOL [Concomitant]
     Route: 065
  4. CORTIVAZOL [Concomitant]
     Indication: TENDON DISORDER
     Route: 065
  5. FORADIL [Concomitant]
     Indication: PNEUMONIA
     Route: 065
  6. MIFLASONE [Concomitant]
     Indication: PNEUMONIA
     Route: 055
  7. PIROXICAM [Concomitant]
     Route: 048
  8. PARACETAMOL AND DEXTROPROPOXYPHENE [Concomitant]
     Route: 048
  9. CALCIPARINE [Concomitant]
     Route: 058
  10. NSAIDS [Concomitant]
     Route: 065

REACTIONS (3)
  - COMPLEX REGIONAL PAIN SYNDROME [None]
  - TENDON RUPTURE [None]
  - TENDONITIS [None]
